FAERS Safety Report 24894456 (Version 2)
Quarter: 2025Q1

REPORT INFORMATION
  Report Type: Report from Study
  Country: CA (occurrence: CA)
  Receive Date: 20250128
  Receipt Date: 20250320
  Transmission Date: 20250408
  Serious: Yes (Other)
  Sender: BAYER HEALTHCARE PHARMACEUTICALS INC.
  Company Number: CA-BAYER-2025A011505

PATIENT
  Age: 67 Year
  Sex: Female

DRUGS (1)
  1. REGORAFENIB [Suspect]
     Active Substance: REGORAFENIB
     Indication: Bone sarcoma
     Dosage: 120 MG, QD
     Route: 048
     Dates: start: 20241210

REACTIONS (1)
  - Liver disorder [Unknown]
